FAERS Safety Report 8142727-4 (Version None)
Quarter: 2012Q1

REPORT INFORMATION
  Report Type: 
  Country: None (occurrence: None)
  Receive Date: 20120216
  Receipt Date: 20120209
  Transmission Date: 20120608
  Serious: Yes (Other)
  Sender: FDA-Public Use
  Company Number: FR-ALLERGAN-1202002US

PATIENT
  Age: 75 Year
  Sex: Male

DRUGS (1)
  1. OZURDEX [Suspect]
     Indication: RETINAL VEIN OCCLUSION
     Dosage: UNK
     Dates: start: 20111109, end: 20111109

REACTIONS (4)
  - CORNEAL OEDEMA [None]
  - ENDOPHTHALMITIS [None]
  - HYPOPYON [None]
  - ANTERIOR CHAMBER INFLAMMATION [None]
